FAERS Safety Report 5160225-7 (Version None)
Quarter: 2006Q4

REPORT INFORMATION
  Report Type: 
  Country: None (occurrence: None)
  Receive Date: 20061120
  Receipt Date: 20061106
  Transmission Date: 20070319
  Serious: Yes (Hospitalization)
  Sender: FDA-Public Use
  Company Number: 2006136814

PATIENT
  Age: 36 Year
  Sex: Female
  Weight: 45.3597 kg

DRUGS (1)
  1. SUDAFED 12 HOUR [Suspect]
     Dosage: ORAL
     Route: 048

REACTIONS (6)
  - COMA [None]
  - DRUG EXPOSURE DURING PREGNANCY [None]
  - INTESTINAL GANGRENE [None]
  - INTESTINAL OBSTRUCTION [None]
  - PREMATURE LABOUR [None]
  - PULMONARY OEDEMA [None]
